FAERS Safety Report 18077347 (Version 2)
Quarter: 2020Q3

REPORT INFORMATION
  Report Type: Spontaneous
  Country: US (occurrence: US)
  Receive Date: 20200728
  Receipt Date: 20200812
  Transmission Date: 20201103
  Serious: Yes (Other)
  Sender: FDA-Public Use
  Company Number: US-TEVA-2020-US-1807045

PATIENT
  Age: 69 Year
  Sex: Male
  Weight: 79.38 kg

DRUGS (3)
  1. GABAPENTIN. [Suspect]
     Active Substance: GABAPENTIN
     Indication: NEURALGIA
     Route: 065
  2. GABAPENTIN. [Suspect]
     Active Substance: GABAPENTIN
     Indication: NECK PAIN
  3. ADVIL [Suspect]
     Active Substance: IBUPROFEN
     Indication: NECK PAIN
     Dosage: 9 ADVIL A DAY
     Route: 065

REACTIONS (4)
  - Drug ineffective [Unknown]
  - Pharyngeal swelling [Unknown]
  - Enlarged uvula [None]
  - Panic attack [Unknown]

NARRATIVE: CASE EVENT DATE: 20200710
